FAERS Safety Report 18681692 (Version 2)
Quarter: 2021Q1

REPORT INFORMATION
  Report Type: Report from Study
  Country: US (occurrence: US)
  Receive Date: 20201230
  Receipt Date: 20210217
  Transmission Date: 20210419
  Serious: Yes (Hospitalization)
  Sender: FDA-Public Use
  Company Number: NVSC2020US340910

PATIENT
  Sex: Female

DRUGS (2)
  1. COSENTYX [Suspect]
     Active Substance: SECUKINUMAB
     Indication: PSORIASIS
  2. COSENTYX [Suspect]
     Active Substance: SECUKINUMAB
     Indication: SKIN LESION
     Dosage: 300 MG, QMO (300MG 2ML EVERY 28 DAYS)
     Route: 065
     Dates: start: 20190103

REACTIONS (10)
  - Respiratory failure [Unknown]
  - Intervertebral disc degeneration [Unknown]
  - COVID-19 pneumonia [Unknown]
  - Chronic left ventricular failure [Unknown]
  - Obesity [Unknown]
  - Sciatica [Unknown]
  - Hypoxia [Unknown]
  - Neuropathy peripheral [Unknown]
  - Essential hypertension [Unknown]
  - Pneumonia [Unknown]
